FAERS Safety Report 11267052 (Version 1)
Quarter: 2015Q3

REPORT INFORMATION
  Report Type: Spontaneous
  Country: US (occurrence: US)
  Receive Date: 20150713
  Receipt Date: 20150713
  Transmission Date: 20151125
  Serious: Yes (Hospitalization)
  Sender: FDA-Public Use
  Company Number: US-MPIJNJ-2013-05649

PATIENT

DRUGS (5)
  1. DEXAMETHASONE. [Suspect]
     Active Substance: DEXAMETHASONE
     Indication: PRIMARY MEDIASTINAL LARGE B-CELL LYMPHOMA
  2. VELCADE [Suspect]
     Active Substance: BORTEZOMIB
     Indication: PRIMARY MEDIASTINAL LARGE B-CELL LYMPHOMA
  3. VORINOSTAT [Concomitant]
     Active Substance: VORINOSTAT
     Indication: PRODUCT USED FOR UNKNOWN INDICATION
  4. CYTOXAN [Suspect]
     Active Substance: CYCLOPHOSPHAMIDE
     Indication: PRIMARY MEDIASTINAL LARGE B-CELL LYMPHOMA
  5. LENALIDOMIDE [Suspect]
     Active Substance: LENALIDOMIDE
     Indication: PRIMARY MEDIASTINAL LARGE B-CELL LYMPHOMA

REACTIONS (2)
  - Product use issue [Unknown]
  - Disease progression [Unknown]
